FAERS Safety Report 24660571 (Version 3)
Quarter: 2025Q2

REPORT INFORMATION
  Report Type: Spontaneous
  Country: CH (occurrence: CH)
  Receive Date: 20241125
  Receipt Date: 20250513
  Transmission Date: 20250717
  Serious: Yes (Hospitalization)
  Sender: MYLAN
  Company Number: None

PATIENT
  Age: 41 Year
  Sex: Male

DRUGS (28)
  1. DYMISTA [Suspect]
     Active Substance: AZELASTINE HYDROCHLORIDE\FLUTICASONE PROPIONATE
     Indication: Product used for unknown indication
  2. DYMISTA [Suspect]
     Active Substance: AZELASTINE HYDROCHLORIDE\FLUTICASONE PROPIONATE
     Route: 065
  3. DYMISTA [Suspect]
     Active Substance: AZELASTINE HYDROCHLORIDE\FLUTICASONE PROPIONATE
     Route: 065
  4. DYMISTA [Suspect]
     Active Substance: AZELASTINE HYDROCHLORIDE\FLUTICASONE PROPIONATE
  5. REMERON [Suspect]
     Active Substance: MIRTAZAPINE
     Indication: Product used for unknown indication
     Dosage: 30 MILLIGRAM, QD (FROM AUTUMN 2022)
     Route: 065
     Dates: start: 2022
  6. REMERON [Suspect]
     Active Substance: MIRTAZAPINE
     Dosage: 30 MILLIGRAM, QD (FROM AUTUMN 2022)
     Dates: start: 2022
  7. REMERON [Suspect]
     Active Substance: MIRTAZAPINE
     Dosage: 30 MILLIGRAM, QD (FROM AUTUMN 2022)
     Dates: start: 2022
  8. REMERON [Suspect]
     Active Substance: MIRTAZAPINE
     Dosage: 30 MILLIGRAM, QD (FROM AUTUMN 2022)
     Route: 065
     Dates: start: 2022
  9. REMERON [Suspect]
     Active Substance: MIRTAZAPINE
     Dosage: 15 MILLIGRAM, QD
     Route: 065
  10. REMERON [Suspect]
     Active Substance: MIRTAZAPINE
     Dosage: 15 MILLIGRAM, QD
  11. REMERON [Suspect]
     Active Substance: MIRTAZAPINE
     Dosage: 15 MILLIGRAM, QD
  12. REMERON [Suspect]
     Active Substance: MIRTAZAPINE
     Dosage: 15 MILLIGRAM, QD
     Route: 065
  13. BILASTINE [Suspect]
     Active Substance: BILASTINE
     Indication: Product used for unknown indication
  14. BILASTINE [Suspect]
     Active Substance: BILASTINE
     Route: 065
  15. BILASTINE [Suspect]
     Active Substance: BILASTINE
     Route: 065
  16. BILASTINE [Suspect]
     Active Substance: BILASTINE
  17. DAFALGAN [Suspect]
     Active Substance: ACETAMINOPHEN
     Indication: Product used for unknown indication
     Route: 065
  18. DAFALGAN [Suspect]
     Active Substance: ACETAMINOPHEN
  19. DAFALGAN [Suspect]
     Active Substance: ACETAMINOPHEN
  20. DAFALGAN [Suspect]
     Active Substance: ACETAMINOPHEN
     Route: 065
  21. DAFALGAN [Suspect]
     Active Substance: ACETAMINOPHEN
     Dosage: UNK, QD (BUT TAKEN REGULARLY (ABOUT 2 G/DAY FROM THE END OF 2022)
     Route: 065
     Dates: start: 2022
  22. DAFALGAN [Suspect]
     Active Substance: ACETAMINOPHEN
     Dosage: UNK, QD (BUT TAKEN REGULARLY (ABOUT 2 G/DAY FROM THE END OF 2022)
     Dates: start: 2022
  23. DAFALGAN [Suspect]
     Active Substance: ACETAMINOPHEN
     Dosage: UNK, QD (BUT TAKEN REGULARLY (ABOUT 2 G/DAY FROM THE END OF 2022)
     Dates: start: 2022
  24. DAFALGAN [Suspect]
     Active Substance: ACETAMINOPHEN
     Dosage: UNK, QD (BUT TAKEN REGULARLY (ABOUT 2 G/DAY FROM THE END OF 2022)
     Route: 065
     Dates: start: 2022
  25. SYMBICORT [Concomitant]
     Active Substance: BUDESONIDE\FORMOTEROL FUMARATE DIHYDRATE
  26. SYMBICORT [Concomitant]
     Active Substance: BUDESONIDE\FORMOTEROL FUMARATE DIHYDRATE
     Route: 065
  27. SYMBICORT [Concomitant]
     Active Substance: BUDESONIDE\FORMOTEROL FUMARATE DIHYDRATE
     Route: 065
  28. SYMBICORT [Concomitant]
     Active Substance: BUDESONIDE\FORMOTEROL FUMARATE DIHYDRATE

REACTIONS (1)
  - Pancreatitis relapsing [Recovered/Resolved]

NARRATIVE: CASE EVENT DATE: 20231001
